FAERS Safety Report 9639722 (Version 1)
Quarter: 2013Q4

REPORT INFORMATION
  Report Type: Spontaneous
  Country: US (occurrence: None)
  Receive Date: 20131021
  Receipt Date: 20131021
  Transmission Date: 20140711
  Serious: Yes (Disabling, Other)
  Sender: FDA-Public Use
  Company Number: None

PATIENT
  Age: 67 Year
  Sex: Male
  Weight: 72.58 kg

DRUGS (2)
  1. OMPRAZOLE [Suspect]
     Indication: GASTROOESOPHAGEAL REFLUX DISEASE
     Dates: start: 20120608, end: 20120613
  2. SIMVASTATIN [Concomitant]

REACTIONS (7)
  - Abnormal behaviour [None]
  - Anger [None]
  - Anxiety [None]
  - Fall [None]
  - Foot fracture [None]
  - Accident [None]
  - Gait disturbance [None]
